FAERS Safety Report 5314716-6 (Version None)
Quarter: 2007Q2

REPORT INFORMATION
  Report Type: 
  Country: None (occurrence: None)
  Receive Date: 20070427
  Receipt Date: 20070416
  Transmission Date: 20071010
  Serious: Yes (Life-Threatening)
  Sender: FDA-Public Use
  Company Number: GXKR2007GB03544

PATIENT
  Age: 13 Month
  Sex: Male
  Weight: 10 kg

DRUGS (3)
  1. AMOXICILLIN [Suspect]
     Indication: OTITIS MEDIA
     Dosage: 125 MG, TID, ORAL
     Route: 048
     Dates: start: 20070228, end: 20070305
  2. CALPOL (PARACETAMOL) [Concomitant]
  3. CALPUFEN [Concomitant]

REACTIONS (6)
  - DIARRHOEA [None]
  - HYPERSENSITIVITY [None]
  - NEPHRITIS INTERSTITIAL [None]
  - RASH MACULO-PAPULAR [None]
  - RENAL FAILURE [None]
  - VOMITING [None]
